FAERS Safety Report 8488531-9 (Version None)
Quarter: 2012Q3

REPORT INFORMATION
  Report Type: 
  Country: None (occurrence: None)
  Receive Date: 20120705
  Receipt Date: 20120622
  Transmission Date: 20120928
  Serious: Yes (Other)
  Sender: FDA-Public Use
  Company Number: CA-GENZYME-FABR-1002592

PATIENT
  Sex: Female
  Weight: 77.7 kg

DRUGS (3)
  1. FABRAZYME [Suspect]
     Indication: FABRY'S DISEASE
     Dosage: 85 MG, Q2W
     Route: 042
  2. TRAMADOL HCL [Concomitant]
     Dosage: 300 MG, UNK
     Route: 065
     Dates: start: 20120110
  3. TRAMADOL HCL [Concomitant]
     Indication: PRODUCT USED FOR UNKNOWN INDICATION
     Dosage: UNK MG, UNK
     Route: 065

REACTIONS (1)
  - SUICIDE ATTEMPT [None]
